FAERS Safety Report 8511509-3 (Version None)
Quarter: 2012Q3

REPORT INFORMATION
  Report Type: 
  Country: None (occurrence: None)
  Receive Date: 20120716
  Receipt Date: 20120703
  Transmission Date: 20120928
  Serious: Yes (Other)
  Sender: FDA-Public Use
  Company Number: US-SANOFI-AVENTIS-2012SA043712

PATIENT
  Age: 76 Year
  Sex: Male

DRUGS (9)
  1. PLAVIX [Suspect]
     Indication: ANTICOAGULANT THERAPY
     Dates: start: 20120617
  2. PLAVIX [Suspect]
     Dates: start: 20120617
  3. VANCOMYCIN [Concomitant]
  4. DILTIAZEM [Concomitant]
     Route: 042
  5. INSULIN [Concomitant]
  6. CORTICOSTEROID NOS [Concomitant]
     Route: 042
  7. NOREPINEPHRINE [Concomitant]
     Route: 041
  8. PIPERACILLIN AND TAZOBACTAM [Concomitant]
  9. FUROSEMIDE [Concomitant]
     Route: 041

REACTIONS (3)
  - INTERSTITIAL LUNG DISEASE [None]
  - CARDIAC FAILURE [None]
  - CONDITION AGGRAVATED [None]
